FAERS Safety Report 15811497 (Version 3)
Quarter: 2019Q1

REPORT INFORMATION
  Report Type: Spontaneous
  Country: US (occurrence: US)
  Receive Date: 20190111
  Receipt Date: 20190130
  Transmission Date: 20190417
  Serious: Yes (Hospitalization, Other)
  Sender: FDA-Public Use
  Company Number: US-PFIZER INC-2019012662

PATIENT
  Age: 82 Year
  Sex: Female
  Weight: 93 kg

DRUGS (3)
  1. DENOSUMAB [Concomitant]
     Active Substance: DENOSUMAB
     Dosage: UNK
  2. FULVESTRANT. [Concomitant]
     Active Substance: FULVESTRANT
     Dosage: UNK
  3. IBRANCE [Suspect]
     Active Substance: PALBOCICLIB
     Indication: BREAST CANCER METASTATIC
     Dosage: 75 MG, 1X/DAY
     Route: 048

REACTIONS (17)
  - Red blood cell count decreased [Unknown]
  - Asthenia [Unknown]
  - Urinary tract infection [Recovered/Resolved]
  - Upper limb fracture [Unknown]
  - Oedema [Unknown]
  - Amnesia [Unknown]
  - Loss of personal independence in daily activities [Recovering/Resolving]
  - Gait disturbance [Not Recovered/Not Resolved]
  - Fluid retention [Unknown]
  - Dysstasia [Not Recovered/Not Resolved]
  - Atrophy [Unknown]
  - White blood cell count decreased [Unknown]
  - Clostridium difficile infection [Recovered/Resolved]
  - Infectious colitis [Unknown]
  - Pain [Unknown]
  - Somnolence [Not Recovered/Not Resolved]
  - Joint range of motion decreased [Unknown]
